FAERS Safety Report 10922417 (Version 1)
Quarter: 2015Q1

REPORT INFORMATION
  Report Type: Spontaneous
  Country: SE (occurrence: SE)
  Receive Date: 20150317
  Receipt Date: 20150317
  Transmission Date: 20150721
  Serious: Yes (Hospitalization)
  Sender: FDA-Public Use
  Company Number: SE-BAYER-2015-038680

PATIENT
  Age: 22 Year
  Sex: Female
  Weight: 63 kg

DRUGS (1)
  1. MIRENA [Suspect]
     Active Substance: LEVONORGESTREL
     Dosage: 20 MCG/24HR, CONT
     Route: 015
     Dates: start: 201409

REACTIONS (7)
  - Depression [Unknown]
  - Genital infection female [Unknown]
  - Uterine spasm [Unknown]
  - Anxiety [Unknown]
  - Mood swings [Unknown]
  - Uterine pain [Unknown]
  - Chest pain [Unknown]

NARRATIVE: CASE EVENT DATE: 201410
